FAERS Safety Report 16078154 (Version 1)
Quarter: 2019Q1

REPORT INFORMATION
  Report Type: Report from Study
  Country: ES (occurrence: ES)
  Receive Date: 20190315
  Receipt Date: 20190315
  Transmission Date: 20190418
  Serious: Yes (Hospitalization)
  Sender: FDA-Public Use
  Company Number: ES-TEVA-2019-ES-1023470

PATIENT
  Age: 59 Year
  Sex: Female

DRUGS (6)
  1. MAGNOGENE 53 MG COMPRIMIDOS RECUBIERTOS, 45 COMPRIMIDOS [Concomitant]
     Indication: HYPOMAGNESAEMIA
     Route: 048
     Dates: start: 20181029
  2. QUETIAPINA (1136A) [Concomitant]
     Active Substance: QUETIAPINE
     Indication: PERSONALITY DISORDER
     Route: 048
     Dates: start: 20180522, end: 20181112
  3. ACFOL 5 MG COMPRIMIDOS , 28 COMPRIMIDOS [Concomitant]
     Indication: ANAEMIA
     Route: 048
     Dates: start: 20181105
  4. LEVETIRACETAM (1167A) [Suspect]
     Active Substance: LEVETIRACETAM
     Indication: FOCAL DYSCOGNITIVE SEIZURES
     Route: 048
     Dates: start: 20181024, end: 20181125
  5. MIRTAZAPINA (2704A) [Concomitant]
     Active Substance: MIRTAZAPINE
     Indication: DEPRESSION
     Route: 048
     Dates: start: 20180522
  6. HIDROXIL B1-B6-B12 COMPRIMIDOS RECUBIERTOS CON PELICULA , 30 COMPRIMID [Concomitant]
     Indication: VITAMIN B COMPLEX DEFICIENCY
     Route: 048
     Dates: start: 20181024

REACTIONS (1)
  - Acute psychosis [Recovered/Resolved]

NARRATIVE: CASE EVENT DATE: 20181107
